APPROVED DRUG PRODUCT: LASIX
Active Ingredient: FUROSEMIDE
Strength: 10MG/ML
Dosage Form/Route: SOLUTION;ORAL
Application: N017688 | Product #001
Applicant: SANOFI AVENTIS US LLC
Approved: Approved Prior to Jan 1, 1982 | RLD: Yes | RS: No | Type: DISCN